FAERS Safety Report 10547223 (Version 1)
Quarter: 2014Q4

REPORT INFORMATION
  Report Type: Spontaneous
  Country: GB (occurrence: GB)
  Receive Date: 20141027
  Receipt Date: 20141027
  Transmission Date: 20150529
  Serious: Yes (Death)
  Sender: FDA-Public Use
  Company Number: PHHY2014GB138169

PATIENT
  Age: 33 Year
  Sex: Male

DRUGS (5)
  1. CODEINE PHOSPHATE [Suspect]
     Active Substance: CODEINE PHOSPHATE
  2. ALCOHOL. [Suspect]
     Active Substance: ALCOHOL
  3. MORPHINE SULFATE. [Suspect]
     Active Substance: MORPHINE SULFATE
  4. TRAMADOL HYDROCHLORIDE. [Suspect]
     Active Substance: TRAMADOL HYDROCHLORIDE
  5. DIHYDROCODEINE [Suspect]
     Active Substance: DIHYDROCODEINE

REACTIONS (1)
  - Accidental poisoning [Fatal]

NARRATIVE: CASE EVENT DATE: 20120414
